FAERS Safety Report 8988720 (Version 1)
Quarter: 2012Q4

REPORT INFORMATION
  Report Type: Spontaneous
  Country: US (occurrence: None)
  Receive Date: 20121224
  Receipt Date: 20121224
  Transmission Date: 20130627
  Serious: Yes (Disabling)
  Sender: FDA-Public Use
  Company Number: None

PATIENT
  Age: 61 Year
  Sex: Female
  Weight: 65.77 kg

DRUGS (1)
  1. ATORVASTATIN [Suspect]
     Indication: HIGH CHOLESTEROL
     Route: 048
     Dates: start: 20120701, end: 20121117

REACTIONS (4)
  - Dysmenorrhoea [None]
  - Myalgia [None]
  - Product quality issue [None]
  - Pain [None]
